FAERS Safety Report 10707869 (Version 1)
Quarter: 2015Q1

REPORT INFORMATION
  Report Type: Spontaneous
  Country: US (occurrence: US)
  Receive Date: 20150113
  Receipt Date: 20150113
  Transmission Date: 20150721
  Serious: No
  Sender: FDA-Public Use
  Company Number: US-CELGENEUS-USA-2014115060

PATIENT
  Sex: Female

DRUGS (7)
  1. VITAMIN D [Concomitant]
     Active Substance: CHOLECALCIFEROL
     Indication: PRODUCT USED FOR UNKNOWN INDICATION
     Route: 048
  2. MVI [Concomitant]
     Active Substance: VITAMINS
     Indication: PRODUCT USED FOR UNKNOWN INDICATION
     Route: 048
  3. CALCIUM [Concomitant]
     Active Substance: CALCIUM
     Indication: PRODUCT USED FOR UNKNOWN INDICATION
     Route: 048
  4. THALOMID [Suspect]
     Active Substance: THALIDOMIDE
     Indication: PLASMA CELL MYELOMA
     Route: 048
     Dates: start: 201111
  5. THALOMID [Suspect]
     Active Substance: THALIDOMIDE
     Route: 048
     Dates: start: 201212
  6. FELODIPINE. [Concomitant]
     Active Substance: FELODIPINE
     Indication: PRODUCT USED FOR UNKNOWN INDICATION
     Route: 048
  7. MELOXICAM. [Concomitant]
     Active Substance: MELOXICAM
     Indication: PRODUCT USED FOR UNKNOWN INDICATION
     Route: 048

REACTIONS (5)
  - Nasopharyngitis [Unknown]
  - Haemorrhoids [Unknown]
  - Arthralgia [Unknown]
  - Anaemia [Unknown]
  - Constipation [Unknown]
